FAERS Safety Report 8954774 (Version 5)
Quarter: 2013Q1

REPORT INFORMATION
  Report Type: Report from Study
  Country: US (occurrence: US)
  Receive Date: 20121207
  Receipt Date: 20130220
  Transmission Date: 20140127
  Serious: Yes (Life-Threatening, Hospitalization)
  Sender: FDA-Public Use
  Company Number: US-PFIZER INC-2012303673

PATIENT
  Age: 28 Year
  Sex: Male
  Weight: 111.6 kg

DRUGS (8)
  1. TOFACITINIB CITRATE [Suspect]
     Indication: IMMUNOSUPPRESSION
     Dosage: 5 MG, 2X/DAY
     Route: 048
     Dates: start: 20091216
  2. ZOLOFT [Suspect]
     Indication: DEPRESSION
     Dosage: 50 MG, 1X/DAY
     Route: 048
     Dates: start: 20121012, end: 20121109
  3. CELLCEPT [Concomitant]
     Indication: IMMUNOSUPPRESSION
     Dosage: 1000 MG, 2X/DAY
     Route: 048
     Dates: start: 20080912
  4. VITAMIN C [Concomitant]
     Indication: PROPHYLAXIS
     Dosage: 500 MG, 1X/DAY
     Route: 048
     Dates: start: 20100101
  5. PRILOSEC [Concomitant]
     Indication: GASTROOESOPHAGEAL REFLUX DISEASE
     Dosage: 20 MG, 1X/DAY
     Route: 048
     Dates: start: 20090107
  6. K-DUR [Concomitant]
     Indication: HYPOKALAEMIA
     Dosage: 20 MEQ, 2X/DAY
     Route: 048
     Dates: start: 20120606
  7. ZYRTEC [Concomitant]
     Indication: HYPERSENSITIVITY
     Dosage: 5 MG, 1X/DAY
     Route: 048
     Dates: start: 20120923
  8. MULTIVITAMINS [Concomitant]
     Dosage: 1X/DAY
     Route: 048
     Dates: start: 20080912

REACTIONS (1)
  - Suicidal ideation [Recovering/Resolving]
